FAERS Safety Report 25608918 (Version 3)
Quarter: 2025Q3

REPORT INFORMATION
  Report Type: Report from Study
  Country: US (occurrence: US)
  Receive Date: 20250726
  Receipt Date: 20250905
  Transmission Date: 20251020
  Serious: No
  Sender: IPSEN BIOPHARMACEUTICALS, INC.
  Company Number: US-IPSEN Group, Research and Development-2025-17728

PATIENT
  Age: 28 Year
  Sex: Male

DRUGS (3)
  1. SOHONOS [Suspect]
     Active Substance: PALOVAROTENE
     Indication: Fibrodysplasia ossificans progressiva
     Dosage: ONE 10MG CAPSULE DAILY.
     Route: 048
     Dates: start: 20240512
  2. SOHONOS [Suspect]
     Active Substance: PALOVAROTENE
     Indication: Fibrodysplasia ossificans progressiva
     Dosage: TAKE TWO 10MG CAPSULES DAILY FOR 28 DAYS.
     Route: 048
     Dates: start: 202312
  3. SOHONOS [Suspect]
     Active Substance: PALOVAROTENE
     Dosage: ONE 5MG CAPSULE DAILY.
     Route: 048
     Dates: start: 20240512

REACTIONS (2)
  - Condition aggravated [Not Recovered/Not Resolved]
  - Mobility decreased [Unknown]
